FAERS Safety Report 6119359 (Version 15)
Quarter: 2013Q1

REPORT INFORMATION
  Report Type: Spontaneous
  Country: US (occurrence: US)
  Receive Date: 20060831
  Receipt Date: 20130315
  Transmission Date: 20140127
  Serious: Yes (Hospitalization, Other)
  Sender: FDA-Public Use
  Company Number: PHEH2006US10880

PATIENT
  Age: 36 Year
  Sex: Male

DRUGS (14)
  1. AREDIA [Suspect]
     Dates: start: 2000, end: 2002
  2. ZOMETA [Suspect]
     Dates: start: 2002
  3. REVLIMID [Suspect]
     Indication: PLASMA CELL MYELOMA
     Route: 048
  4. THALOMID [Concomitant]
     Dosage: 150 MG, QHS
  5. FLEXERIL [Concomitant]
  6. LISINOPRIL [Concomitant]
  7. HYDROCHLOROTHIAZIDE [Concomitant]
  8. ATENOLOL [Concomitant]
  9. KLONOPIN [Concomitant]
     Dosage: .25 MG, QD
     Route: 048
  10. DOXEPIN [Concomitant]
     Dosage: 25 MG, QHS
     Route: 048
  11. NEUPOGEN [Concomitant]
  12. CYTOXAN [Concomitant]
  13. BACTRIM [Concomitant]
  14. ZANTAC [Concomitant]

REACTIONS (93)
  - Gingival recession [Unknown]
  - Cataract [Unknown]
  - Seborrhoeic keratosis [Unknown]
  - Basal cell carcinoma [Unknown]
  - Plasmacytoma [Unknown]
  - Plasma cell myeloma [Unknown]
  - Metastasis [Unknown]
  - Peroneal nerve palsy [Unknown]
  - Metastases to bone [Unknown]
  - Pathological fracture [Unknown]
  - Osteonecrosis of jaw [Recovered/Resolved]
  - Osteomyelitis [Recovered/Resolved]
  - General physical health deterioration [Unknown]
  - Anxiety [Unknown]
  - Decreased interest [Unknown]
  - Impaired healing [Recovering/Resolving]
  - Wound [Recovering/Resolving]
  - Bone swelling [Unknown]
  - Hypoaesthesia [Unknown]
  - Secondary sequestrum [Unknown]
  - Gingival infection [Unknown]
  - Exostosis [Unknown]
  - Pain in jaw [Unknown]
  - Neck pain [Unknown]
  - Gingival erosion [Unknown]
  - Animal scratch [Unknown]
  - Musculoskeletal chest pain [Unknown]
  - Pain in extremity [Unknown]
  - Leukoplakia [Unknown]
  - Tongue disorder [Unknown]
  - Palpitations [Unknown]
  - Paraesthesia [Unknown]
  - Dermatitis [Recovered/Resolved]
  - Upper respiratory tract infection [Unknown]
  - Diarrhoea haemorrhagic [Unknown]
  - Escherichia test positive [Unknown]
  - Clostridium test positive [Unknown]
  - Folliculitis [Recovering/Resolving]
  - Dysthymic disorder [Unknown]
  - Abscess oral [Recovered/Resolved]
  - Neuropathy peripheral [Unknown]
  - Acne [Unknown]
  - Bone pain [Recovered/Resolved]
  - Bone lesion [Unknown]
  - Fall [Recovering/Resolving]
  - Laceration [Recovering/Resolving]
  - Scrotal cyst [Unknown]
  - Colitis [Unknown]
  - Rectal haemorrhage [Unknown]
  - Malignant neoplasm progression [Unknown]
  - Abdominal pain [Unknown]
  - Major depression [Unknown]
  - Neurodermatitis [Unknown]
  - Sinusitis [Unknown]
  - Pleuritic pain [Unknown]
  - Hypokalaemia [Unknown]
  - Muscle spasms [Unknown]
  - Osteopenia [Unknown]
  - Tinea versicolour [Unknown]
  - Fungal skin infection [Unknown]
  - Arthralgia [Unknown]
  - Night sweats [Unknown]
  - Intervertebral disc space narrowing [Unknown]
  - Hordeolum [Unknown]
  - Increased tendency to bruise [Unknown]
  - Accident [Unknown]
  - Facial pain [Unknown]
  - Hyperlipidaemia [Unknown]
  - Insomnia [Unknown]
  - Influenza [Unknown]
  - Pneumococcal infection [Unknown]
  - Hepatic function abnormal [Unknown]
  - Haemorrhoids [Unknown]
  - Back pain [Unknown]
  - Cervical radiculopathy [Unknown]
  - Scrotal disorder [Unknown]
  - Ecchymosis [Unknown]
  - Jaw disorder [Unknown]
  - Pyogenic granuloma [Unknown]
  - Benign neoplasm of skin [Unknown]
  - Intervertebral disc protrusion [Unknown]
  - Rib fracture [Unknown]
  - Gingival bleeding [Unknown]
  - Inflammatory pain [Unknown]
  - Bone loss [Unknown]
  - Spondylitis [Unknown]
  - Intervertebral disc degeneration [Unknown]
  - Temporomandibular joint syndrome [Unknown]
  - Sinus bradycardia [Unknown]
  - Swelling face [Unknown]
  - Actinomycosis [Unknown]
  - Osteolysis [Unknown]
  - Osteosclerosis [Unknown]
